FAERS Safety Report 16708090 (Version 6)
Quarter: 2020Q4

REPORT INFORMATION
  Report Type: Report from Study
  Country: JP (occurrence: JP)
  Receive Date: 20190815
  Receipt Date: 20201127
  Transmission Date: 20210113
  Serious: Yes (Hospitalization, Other)
  Sender: FDA-Public Use
  Company Number: JP-ALEXION-A201912016

PATIENT
  Age: 76 Year
  Sex: Female
  Weight: 51 kg

DRUGS (8)
  1. MESTINON [Concomitant]
     Active Substance: PYRIDOSTIGMINE BROMIDE
     Indication: MYASTHENIA GRAVIS
     Dosage: 30 MG, BID
     Route: 048
     Dates: start: 20180610
  2. SOLIRIS [Suspect]
     Active Substance: ECULIZUMAB
     Dosage: 1200 MG, Q2W
     Route: 042
     Dates: start: 20190123
  3. MESTINON [Concomitant]
     Active Substance: PYRIDOSTIGMINE BROMIDE
     Dosage: 30 MG, BID
     Route: 048
     Dates: start: 20181226
  4. PREDONINE [Concomitant]
     Active Substance: PREDNISOLONE
     Indication: MYASTHENIA GRAVIS
     Dosage: 10-15 MG, QD
     Route: 048
     Dates: start: 20171004
  5. PREDONINE [Concomitant]
     Active Substance: PREDNISOLONE
     Dosage: 10 MG, QD
     Route: 048
     Dates: start: 20181226
  6. TACROLIMUS. [Concomitant]
     Active Substance: TACROLIMUS
     Indication: MYASTHENIA GRAVIS
     Dosage: 1-3 MG, QD
     Route: 048
     Dates: start: 20171016
  7. PROGRAF [Concomitant]
     Active Substance: TACROLIMUS
     Indication: MYASTHENIA GRAVIS
     Dosage: 1 MG, QD
     Route: 048
     Dates: start: 20181226
  8. SOLIRIS [Suspect]
     Active Substance: ECULIZUMAB
     Indication: MYASTHENIA GRAVIS
     Dosage: 900 MG, QW
     Route: 042
     Dates: start: 20181226, end: 20190116

REACTIONS (7)
  - Gastrointestinal disorder [Recovering/Resolving]
  - Nausea [Unknown]
  - Diarrhoea [Unknown]
  - Myasthenia gravis [Not Recovered/Not Resolved]
  - Gastrointestinal polyp haemorrhage [Unknown]
  - Atrial fibrillation [Unknown]
  - Angina unstable [Unknown]

NARRATIVE: CASE EVENT DATE: 201905
